FAERS Safety Report 5256382-4 (Version None)
Quarter: 2007Q1

REPORT INFORMATION
  Report Type: 
  Country: None (occurrence: None)
  Receive Date: 20061204
  Receipt Date: 20060908
  Transmission Date: 20070707
  Serious: No
  Sender: FDA-Public Use
  Company Number: 2006-BP-10605BP

PATIENT
  Sex: Male

DRUGS (7)
  1. SPIRIVA [Suspect]
     Indication: CHRONIC OBSTRUCTIVE PULMONARY DISEASE
     Dosage: 36 MG (18 MCG,BID) IH
     Route: 055
     Dates: start: 20040501
  2. ADVAIR (SERETIDE) [Concomitant]
  3. THEOPHYLLINE [Concomitant]
  4. COMBIVENT (COMBIVENT /01261001) [Concomitant]
  5. OXYGEN (OXYGEN) [Concomitant]
  6. PROZAC [Concomitant]
  7. LORTAB [Concomitant]

REACTIONS (2)
  - HEADACHE [None]
  - MUSCULOSKELETAL PAIN [None]
